FAERS Safety Report 24584414 (Version 1)
Quarter: 2024Q4

REPORT INFORMATION
  Report Type: Spontaneous
  Country: US (occurrence: US)
  Receive Date: 20241106
  Receipt Date: 20241106
  Transmission Date: 20250114
  Serious: Yes (Other)
  Sender: ALEXION PHARMACEUTICALS
  Company Number: US-AstraZeneca-CH-00737352A

PATIENT

DRUGS (4)
  1. SAPHNELO [Suspect]
     Active Substance: ANIFROLUMAB-FNIA
     Indication: Lupus-like syndrome
     Dosage: 300 UNK, QMONTH
     Route: 065
  2. SAPHNELO [Suspect]
     Active Substance: ANIFROLUMAB-FNIA
     Dosage: 300 UNK, QMONTH
  3. SAPHNELO [Suspect]
     Active Substance: ANIFROLUMAB-FNIA
     Dosage: 300 UNK, QMONTH
     Route: 065
  4. SAPHNELO [Suspect]
     Active Substance: ANIFROLUMAB-FNIA
     Dosage: 300 UNK, QMONTH

REACTIONS (1)
  - Lupus nephritis [Unknown]
